FAERS Safety Report 17605533 (Version 1)
Quarter: 2020Q1

REPORT INFORMATION
  Report Type: Spontaneous
  Country: US (occurrence: US)
  Receive Date: 20200331
  Receipt Date: 20200331
  Transmission Date: 20200409
  Serious: Yes (Other)
  Sender: FDA-Public Use
  Company Number: US-SA-2020SA077820

PATIENT
  Age: 82 Year
  Sex: Female

DRUGS (3)
  1. SOTALOL. [Concomitant]
     Active Substance: SOTALOL
  2. ELIQUIS [Suspect]
     Active Substance: APIXABAN
  3. MULTAQ [Suspect]
     Active Substance: DRONEDARONE
     Indication: ATRIAL FIBRILLATION
     Dosage: 400 MG, BID
     Dates: start: 20200312, end: 20200323

REACTIONS (1)
  - Blood urine present [Not Recovered/Not Resolved]

NARRATIVE: CASE EVENT DATE: 20200323
